FAERS Safety Report 9748820 (Version 4)
Quarter: 2016Q3

REPORT INFORMATION
  Report Type: Spontaneous
  Country: US (occurrence: US)
  Receive Date: 20131212
  Receipt Date: 20160906
  Transmission Date: 20161109
  Serious: No
  Sender: FDA-Public Use
  Company Number: US-INCYTE CORPORATION-2013IN001486

PATIENT
  Age: 85 Year
  Sex: Female
  Weight: 71 kg

DRUGS (17)
  1. JAKAFI [Suspect]
     Active Substance: RUXOLITINIB
     Indication: SPLENOMEGALY
     Dosage: 20 MG, BID
     Route: 048
     Dates: start: 20130709, end: 20130725
  2. JAKAFI [Suspect]
     Active Substance: RUXOLITINIB
     Indication: MYELOFIBROSIS
     Dosage: 10 MG TABLET ALTERNATING WITH TWO TABLETS (20 MG) EVERY OTHER DAY
     Route: 048
     Dates: start: 20130524
  3. TAURINE [Concomitant]
     Active Substance: TAURINE
  4. JAKAFI [Suspect]
     Active Substance: RUXOLITINIB
     Dosage: 20 MG, QD
     Route: 048
     Dates: start: 20130726
  5. ASCORBIC ACID. [Concomitant]
     Active Substance: ASCORBIC ACID
  6. CENTRUM SILVER [Concomitant]
     Active Substance: MINERALS\VITAMINS
  7. ALLOPURINOL. [Concomitant]
     Active Substance: ALLOPURINOL
  8. ASPIRIN. [Concomitant]
     Active Substance: ASPIRIN
  9. FLAXSEED [Concomitant]
     Active Substance: FLAX SEED
  10. ERGOCALCIFEROL. [Concomitant]
     Active Substance: ERGOCALCIFEROL
  11. Q-10 CO-ENZYME [Concomitant]
  12. LASIX [Concomitant]
     Active Substance: FUROSEMIDE
  13. KEFLEX [Concomitant]
     Active Substance: CEPHALEXIN
  14. JAKAFI [Suspect]
     Active Substance: RUXOLITINIB
     Dosage: 10 MG, BID
  15. PRINIVIL [Concomitant]
     Active Substance: LISINOPRIL
  16. MAGNESIUM [Concomitant]
     Active Substance: MAGNESIUM
  17. TRAMADOL. [Concomitant]
     Active Substance: TRAMADOL

REACTIONS (14)
  - Contusion [Unknown]
  - Epistaxis [Unknown]
  - Fatigue [Unknown]
  - Oedema peripheral [Unknown]
  - Increased appetite [Unknown]
  - Urinary tract infection [Unknown]
  - Gait disturbance [Unknown]
  - Headache [Recovering/Resolving]
  - Weight increased [Unknown]
  - Blood potassium increased [Unknown]
  - Platelet count decreased [Unknown]
  - Postoperative wound infection [Unknown]
  - Arthralgia [Unknown]
  - Haemoglobin decreased [Unknown]

NARRATIVE: CASE EVENT DATE: 20130705
